APPROVED DRUG PRODUCT: GYNE-LOTRIMIN 3
Active Ingredient: CLOTRIMAZOLE
Strength: 2%
Dosage Form/Route: CREAM;VAGINAL
Application: N020574 | Product #001
Applicant: BAYER HEALTHCARE LLC
Approved: Nov 24, 1998 | RLD: Yes | RS: No | Type: DISCN